FAERS Safety Report 5221395-5 (Version None)
Quarter: 2007Q1

REPORT INFORMATION
  Report Type: 
  Country: None (occurrence: None)
  Receive Date: 20061201
  Receipt Date: 20060706
  Transmission Date: 20070707
  Serious: No
  Sender: FDA-Public Use
  Company Number: 2006PV017086

PATIENT
  Age: 54 Year
  Sex: Female
  Weight: 81.1939 kg

DRUGS (6)
  1. BYETTA [Suspect]
     Indication: DIABETES MELLITUS NON-INSULIN-DEPENDENT
     Dosage: SEE IMAGE
     Route: 058
     Dates: start: 20060412, end: 20060511
  2. BYETTA [Suspect]
     Indication: DIABETES MELLITUS NON-INSULIN-DEPENDENT
     Dosage: SEE IMAGE
     Route: 058
     Dates: start: 20060512, end: 20060628
  3. AVAPRO [Concomitant]
  4. BISOPROLOL FUMARATE [Concomitant]
  5. ASPIRIN [Concomitant]
  6. FISH OIL [Concomitant]

REACTIONS (7)
  - CHILLS [None]
  - KERATOCONJUNCTIVITIS SICCA [None]
  - NAUSEA [None]
  - OCULAR HYPERAEMIA [None]
  - PERIORBITAL OEDEMA [None]
  - RETCHING [None]
  - VOMITING [None]
